FAERS Safety Report 6087039-8 (Version None)
Quarter: 2009Q1

REPORT INFORMATION
  Report Type: 
  Country: None (occurrence: None)
  Receive Date: 20090223
  Receipt Date: 20090216
  Transmission Date: 20090719
  Serious: Yes (Other)
  Sender: FDA-Public Use
  Company Number: PHHY2009JP05807

PATIENT

DRUGS (2)
  1. ZOMETA [Suspect]
     Indication: BONE LESION
     Route: 042
  2. AREDIA [Suspect]
     Indication: MULTIPLE MYELOMA
     Route: 042

REACTIONS (3)
  - BONE DISORDER [None]
  - BONE PAIN [None]
  - OSTEONECROSIS [None]
